FAERS Safety Report 8366161-7 (Version None)
Quarter: 2012Q2

REPORT INFORMATION
  Report Type: 
  Country: None (occurrence: None)
  Receive Date: 20120516
  Receipt Date: 20120516
  Transmission Date: 20120825
  Serious: No
  Sender: FDA-Public Use
  Company Number: None

PATIENT
  Age: 46 Year
  Sex: Female
  Weight: 77.1115 kg

DRUGS (1)
  1. MAGNEVIST [Suspect]
     Indication: VERTIGO
     Dosage: 16ML 1 VENOUS
     Dates: start: 20120515

REACTIONS (2)
  - URTICARIA [None]
  - RASH MACULAR [None]
